FAERS Safety Report 10048171 (Version 1)
Quarter: 2014Q1

REPORT INFORMATION
  Report Type: Report from Study
  Country: TR (occurrence: TR)
  Receive Date: 20140331
  Receipt Date: 20140331
  Transmission Date: 20141002
  Serious: Yes (Hospitalization)
  Sender: FDA-Public Use
  Company Number: TR-B.I. PHARMACEUTICALS,INC./RIDGEFIELD-2014-BI-13236TK

PATIENT
  Age: 66 Year
  Sex: Male

DRUGS (2)
  1. PEXOLA [Suspect]
     Indication: PARKINSON^S DISEASE
     Route: 048
  2. LUSTRAL [Concomitant]
     Route: 065

REACTIONS (1)
  - Dyspepsia [Recovered/Resolved]
